FAERS Safety Report 9528184 (Version 2)
Quarter: 2013Q4

REPORT INFORMATION
  Report Type: Report from Study
  Country: US (occurrence: US)
  Receive Date: 20130917
  Receipt Date: 20131104
  Transmission Date: 20140711
  Serious: Yes (Death, Other)
  Sender: FDA-Public Use
  Company Number: PHEH2013US019385

PATIENT
  Age: 81 Year
  Sex: Female

DRUGS (15)
  1. TOBI [Suspect]
     Dosage: 300 MG, BID(28 DAYS ON AND 28 DAYS OFF)
     Dates: start: 20120829
  2. ADVAIR DISKUS [Concomitant]
     Dosage: 1 DF (250-50 MCG), BID
  3. ATIVAN [Concomitant]
     Dosage: 1 DF, UNK 30 TABLETS DISPENSED)
  4. NORVASC [Concomitant]
     Dosage: 5 MG, UNK
     Route: 048
  5. CALCIDOSE VITAMINE D [Concomitant]
     Dosage: 1 DF, UNK
     Route: 048
  6. DIABETA [Concomitant]
     Dosage: 1.25 MG, BID
     Route: 048
  7. HYDRODIURIL [Concomitant]
     Dosage: 50 MG, UNK
     Route: 048
  8. PLAQUENIL [Concomitant]
     Dosage: 50 MG, UNK
     Route: 048
  9. SPIRIVA [Concomitant]
     Dosage: 1 DF, UNK
  10. ASPIRIN [Concomitant]
     Dosage: 81 MG, UNK
  11. LIPITOR [Concomitant]
     Dosage: 40 MG, UNK
     Route: 048
  12. PROVENTIL HFA//SALBUTAMOL SULFATE [Concomitant]
     Dosage: 2 DF,EVERY 4 HOURS
  13. VENTOLIN HFA [Concomitant]
     Dosage: 2 DF, UNK
  14. MIRTAZAPINE [Concomitant]
     Dosage: UNK UKN, UNK
  15. FOSAMAX [Concomitant]
     Dosage: 70 MG, EVERY 7  DAYS
     Route: 048

REACTIONS (21)
  - Bronchiectasis [Fatal]
  - Respiratory tract congestion [Fatal]
  - Increased upper airway secretion [Fatal]
  - Cough [Fatal]
  - Diabetes mellitus [Fatal]
  - Pseudomonas infection [Unknown]
  - Dyspnoea exertional [Unknown]
  - Cachexia [Unknown]
  - Decreased appetite [Unknown]
  - Dyspnoea paroxysmal nocturnal [Unknown]
  - Prolonged expiration [Unknown]
  - Lung hyperinflation [Unknown]
  - Arthritis [Unknown]
  - Malnutrition [Unknown]
  - Sputum retention [Unknown]
  - Neck pain [Unknown]
  - Pain in extremity [Unknown]
  - Decreased activity [Unknown]
  - Candida infection [Unknown]
  - Wheezing [Unknown]
  - Ageusia [Unknown]
